FAERS Safety Report 9309605 (Version 2)
Quarter: 2013Q4

REPORT INFORMATION
  Report Type: Spontaneous
  Country: US (occurrence: US)
  Receive Date: 20130525
  Receipt Date: 20131126
  Transmission Date: 20140711
  Serious: No
  Sender: FDA-Public Use
  Company Number: US-BRISTOL-MYERS SQUIBB COMPANY-17483181

PATIENT
  Age: 71 Year
  Sex: Female
  Weight: 79.36 kg

DRUGS (4)
  1. BYDUREON [Suspect]
     Indication: TYPE 2 DIABETES MELLITUS
     Dosage: EXENATIDE LONG ACTING RELEASE
     Route: 058
     Dates: start: 201208
  2. LEVEMIR [Concomitant]
     Indication: TYPE 2 DIABETES MELLITUS
  3. GLUCOVANCE [Concomitant]
     Indication: TYPE 2 DIABETES MELLITUS
     Dosage: 1DF:1TAB
     Route: 048
  4. METFORMIN [Concomitant]
     Route: 048

REACTIONS (11)
  - Decreased appetite [Recovered/Resolved]
  - Weight decreased [Unknown]
  - Off label use [Recovered/Resolved]
  - Stress [Unknown]
  - Alopecia [Not Recovered/Not Resolved]
  - Blood glucose decreased [Not Recovered/Not Resolved]
  - Nervousness [Not Recovered/Not Resolved]
  - Asthenia [Not Recovered/Not Resolved]
  - Herpes zoster [Recovered/Resolved]
  - Cough [Recovered/Resolved]
  - Nasopharyngitis [Recovered/Resolved]
